FAERS Safety Report 20713043 (Version 1)
Quarter: 2022Q2

REPORT INFORMATION
  Report Type: Spontaneous
  Country: LU (occurrence: LU)
  Receive Date: 20220415
  Receipt Date: 20220415
  Transmission Date: 20220720
  Serious: Yes (Other)
  Sender: FDA-Public Use
  Company Number: None

PATIENT
  Age: 73 Year
  Sex: Female
  Weight: 55.2 kg

DRUGS (6)
  1. CARBOPLATIN [Suspect]
     Active Substance: CARBOPLATIN
     Indication: Disease recurrence
     Dosage: 12TH CHEMOTHERAPY COURSE, UNIT DOSE : 314.81 MG
     Route: 042
     Dates: start: 20220316, end: 20220316
  2. CARBOPLATIN [Suspect]
     Active Substance: CARBOPLATIN
     Indication: Ovarian cancer
  3. ABRAXANE [Suspect]
     Active Substance: PACLITAXEL
     Indication: Disease recurrence
     Dosage: 12TH CHEMOTHERAPY COURSE, UNIT DOSE : 146.12 MG
     Route: 042
     Dates: start: 20220316, end: 20220316
  4. ABRAXANE [Suspect]
     Active Substance: PACLITAXEL
     Indication: Ovarian cancer
  5. FORTECORTINE Mono [Concomitant]
     Indication: Premedication
     Dosage: UNIT DOSE : 8 MG
     Route: 042
     Dates: start: 20220316, end: 20220316
  6. Ondansetron BBraun [Concomitant]
     Indication: Premedication
     Dosage: UNIT DOSE : 8 MG
     Route: 042
     Dates: start: 20220316, end: 20220316

REACTIONS (1)
  - Infusion related hypersensitivity reaction [Recovered/Resolved]

NARRATIVE: CASE EVENT DATE: 20220316
